FAERS Safety Report 9335258 (Version 2)
Quarter: 2013Q2

REPORT INFORMATION
  Report Type: Spontaneous
  Country: US (occurrence: US)
  Receive Date: 20130606
  Receipt Date: 20130613
  Transmission Date: 20140414
  Serious: No
  Sender: FDA-Public Use
  Company Number: US-009507513-1306USA002108

PATIENT
  Age: 54 Year
  Sex: Male

DRUGS (3)
  1. PEGINTRON [Suspect]
     Indication: HEPATITIS C
     Dosage: 1 REDIPEN 150 WEEKLY
     Route: 058
     Dates: start: 20130514
  2. TELAPREVIR [Suspect]
  3. RIBASPHERE [Suspect]

REACTIONS (3)
  - Abdominal pain upper [Recovered/Resolved]
  - Drug dose omission [Unknown]
  - Product quality issue [Unknown]
